FAERS Safety Report 14655698 (Version 3)
Quarter: 2018Q2

REPORT INFORMATION
  Report Type: Report from Study
  Country: CN (occurrence: CN)
  Receive Date: 20180319
  Receipt Date: 20180412
  Transmission Date: 20180711
  Serious: Yes (Hospitalization, Other)
  Sender: FDA-Public Use
  Company Number: CN-BAYER-2018-006523

PATIENT
  Age: 60 Year
  Sex: Male

DRUGS (1)
  1. STIVARGA [Suspect]
     Active Substance: REGORAFENIB
     Indication: COLORECTAL CANCER
     Dosage: 120 MG, QD
     Route: 048
     Dates: start: 20180107, end: 20180218

REACTIONS (10)
  - Discomfort [None]
  - Hepatic function abnormal [None]
  - Haematuria [Not Recovered/Not Resolved]
  - Oliguria [Not Recovered/Not Resolved]
  - Hospitalisation [None]
  - Blood urine present [Recovering/Resolving]
  - Proteinuria [Recovering/Resolving]
  - Blood bilirubin increased [None]
  - Heart rate increased [Recovering/Resolving]
  - Blood bilirubin increased [Not Recovered/Not Resolved]

NARRATIVE: CASE EVENT DATE: 20180109
